FAERS Safety Report 17339643 (Version 1)
Quarter: 2020Q1

REPORT INFORMATION
  Report Type: Report from Study
  Country: GB (occurrence: GB)
  Receive Date: 20200129
  Receipt Date: 20200129
  Transmission Date: 20200409
  Serious: Yes (Other)
  Sender: FDA-Public Use
  Company Number: GB-JNJFOC-20190929882

PATIENT
  Sex: Female

DRUGS (1)
  1. STELARA [Suspect]
     Active Substance: USTEKINUMAB
     Indication: CROHN^S DISEASE
     Dosage: 90 MG/1ML
     Route: 058
     Dates: start: 20190605

REACTIONS (4)
  - Product dose omission [Unknown]
  - Crohn^s disease [Unknown]
  - Skin laceration [Not Recovered/Not Resolved]
  - Gingivitis [Unknown]

NARRATIVE: CASE EVENT DATE: 2019
